FAERS Safety Report 8087203-2 (Version None)
Quarter: 2012Q1

REPORT INFORMATION
  Report Type: 
  Country: None (occurrence: None)
  Receive Date: 20120128
  Receipt Date: 20110427
  Transmission Date: 20120608
  Serious: No
  Sender: FDA-Public Use
  Company Number: US-ABBOTT-11P-163-0722056-00

PATIENT
  Age: 32 Year
  Sex: Female

DRUGS (2)
  1. SYNTHROID [Concomitant]
     Indication: THYROID DISORDER
     Dates: start: 20060101
  2. HUMIRA [Suspect]
     Indication: COLITIS ULCERATIVE
     Dates: start: 20110201

REACTIONS (5)
  - DIARRHOEA [None]
  - HEADACHE [None]
  - SINUSITIS [None]
  - DRY SKIN [None]
  - RASH [None]
